FAERS Safety Report 24905333 (Version 6)
Quarter: 2025Q3

REPORT INFORMATION
  Report Type: Spontaneous
  Country: JP (occurrence: JP)
  Receive Date: 20250130
  Receipt Date: 20250729
  Transmission Date: 20251020
  Serious: Yes (Hospitalization)
  Sender: AKEBIA THERAPEUTICS
  Company Number: JP-IQVIA-JT2025JP000021

PATIENT
  Age: 76 Year
  Sex: Male
  Weight: 55.5 kg

DRUGS (34)
  1. FERRIC CITRATE ANHYDROUS [Suspect]
     Active Substance: FERRIC CITRATE ANHYDROUS
     Indication: Iron deficiency anaemia
     Dosage: 250 MILLIGRAM, QD
     Route: 048
     Dates: start: 20241116
  2. FERRIC CITRATE ANHYDROUS [Suspect]
     Active Substance: FERRIC CITRATE ANHYDROUS
     Indication: Hyperphosphataemia
  3. ENARODUSTAT [Suspect]
     Active Substance: ENARODUSTAT
     Indication: Nephrogenic anaemia
     Dosage: 4 MILLIGRAM, QD
     Route: 048
     Dates: start: 20241010, end: 20241127
  4. ENARODUSTAT [Suspect]
     Active Substance: ENARODUSTAT
     Dosage: 2 MILLIGRAM, QD
     Route: 048
     Dates: start: 20241128, end: 20250122
  5. ENARODUSTAT [Suspect]
     Active Substance: ENARODUSTAT
     Dosage: 4 MILLIGRAM, QD
     Route: 048
     Dates: start: 20250123, end: 20250409
  6. ENARODUSTAT [Suspect]
     Active Substance: ENARODUSTAT
     Dosage: 6 MILLIGRAM, QD
     Route: 048
     Dates: start: 20250410
  7. ROCALTROL [Suspect]
     Active Substance: CALCITRIOL
     Indication: Hyperparathyroidism secondary
     Dosage: 1 MICROGRAM, QWK
     Route: 042
     Dates: end: 20241011
  8. ROCALTROL [Suspect]
     Active Substance: CALCITRIOL
     Indication: Hypocalcaemia
     Dosage: 1.5 MICROGRAM, QWK
     Route: 042
     Dates: start: 20241012, end: 20250328
  9. ROCALTROL [Suspect]
     Active Substance: CALCITRIOL
     Dosage: 1 MICROGRAM, QWK (WEEK 2 AND WEEK 3)
     Route: 042
     Dates: start: 20241012, end: 20250328
  10. ROCALTROL [Suspect]
     Active Substance: CALCITRIOL
     Dosage: 1 MICROGRAM, QWK
     Route: 042
     Dates: start: 20250329
  11. URSODIOL [Concomitant]
     Active Substance: URSODIOL
     Indication: Chronic hepatitis
     Dosage: 100 MILLIGRAM, BID
     Route: 048
  12. LINZESS [Concomitant]
     Active Substance: LINACLOTIDE
     Indication: Constipation
     Dosage: 0.25 MILLIGRAM, QD
     Route: 048
  13. TRAMADOL [Concomitant]
     Active Substance: TRAMADOL
     Indication: Pain
     Dosage: 50 MILLIGRAM, TID
     Route: 048
  14. BENIDIPINE HYDROCHLORIDE [Concomitant]
     Active Substance: BENIDIPINE HYDROCHLORIDE
     Indication: Hypertension
     Dosage: 1 MILLIGRAM, QD
     Route: 048
  15. BENIDIPINE HYDROCHLORIDE [Concomitant]
     Active Substance: BENIDIPINE HYDROCHLORIDE
     Dosage: 1 MILLIGRAM, QD
     Route: 048
     Dates: end: 20250207
  16. BENIDIPINE HYDROCHLORIDE [Concomitant]
     Active Substance: BENIDIPINE HYDROCHLORIDE
     Dosage: 2 MILLIGRAM, 4 TIMES/WK
     Route: 048
     Dates: start: 20250208
  17. MAGNESIUM OXIDE [Concomitant]
     Active Substance: MAGNESIUM OXIDE
     Indication: Constipation
     Dosage: 330 MILLIGRAM, QD
     Route: 048
  18. SPIRONOLACTONE [Concomitant]
     Active Substance: SPIRONOLACTONE
     Indication: Hypertension
     Dosage: 50 MILLIGRAM, QD
     Route: 048
     Dates: end: 20250409
  19. GASTER [Concomitant]
     Active Substance: FAMOTIDINE
     Indication: Gastric ulcer
     Dosage: 10 MILLIGRAM, QD
     Route: 048
  20. GASTER [Concomitant]
     Active Substance: FAMOTIDINE
     Indication: Gastrooesophageal reflux disease
  21. FURSULTIAMINE [Concomitant]
     Active Substance: FURSULTIAMINE
     Indication: Vitamin B1 deficiency
     Dosage: 25 MILLIGRAM, QD
     Route: 048
  22. FOLIC ACID [Concomitant]
     Active Substance: FOLIC ACID
     Indication: Folate deficiency
     Dosage: 5 MILLIGRAM, QD
     Route: 048
  23. SODIUM FERROUS CITRATE [Concomitant]
     Active Substance: SODIUM FERROUS CITRATE
     Indication: Iron deficiency anaemia
     Dosage: 50 MILLIGRAM, QD
     Route: 048
     Dates: end: 20241115
  24. POLAPREZINC [Concomitant]
     Active Substance: POLAPREZINC
     Indication: Gastric ulcer
     Dosage: 75 MILLIGRAM, QD
     Route: 048
  25. ALLELOCK [Concomitant]
     Active Substance: OLOPATADINE HYDROCHLORIDE
     Indication: Rhinitis allergic
     Dosage: 5 MILLIGRAM, QD
     Route: 048
  26. RINDERON VG [Concomitant]
     Active Substance: BETAMETHASONE VALERATE\GENTAMICIN SULFATE
     Indication: Pruritus
     Route: 003
  27. LOXOPROFEN SODIUM [Concomitant]
     Active Substance: LOXOPROFEN SODIUM
     Indication: Osteoarthritis
     Route: 003
  28. CALONAL [Concomitant]
     Active Substance: ACETAMINOPHEN
     Indication: Pain
     Route: 048
     Dates: start: 20241116
  29. CALONAL [Concomitant]
     Active Substance: ACETAMINOPHEN
     Indication: Pain
  30. CALTAN [Concomitant]
     Active Substance: CALCIUM CARBONATE
     Indication: Hyperphosphataemia
     Dosage: 250 MILLIGRAM, QD
     Route: 048
     Dates: start: 20241217, end: 20250207
  31. CALTAN [Concomitant]
     Active Substance: CALCIUM CARBONATE
     Indication: Hyperphosphataemia
     Dosage: 250 MILLIGRAM, BID
     Route: 048
     Dates: start: 20250208
  32. HERBALS [Concomitant]
     Active Substance: HERBALS
     Indication: Diarrhoea
     Dosage: 3 GRAM, TID
     Route: 048
     Dates: start: 20241219
  33. IRON SUCROSE [Concomitant]
     Active Substance: IRON SUCROSE
     Indication: Iron deficiency anaemia
     Dosage: 40 MILLIGRAM, Q4WK
     Route: 042
     Dates: start: 20250109
  34. IRON SUCROSE [Concomitant]
     Active Substance: IRON SUCROSE
     Indication: Iron deficiency anaemia

REACTIONS (7)
  - Subdural haematoma [Recovering/Resolving]
  - Iron deficiency anaemia [Recovering/Resolving]
  - Hypocalcaemia [Recovering/Resolving]
  - Hyperphosphataemia [Recovered/Resolved]
  - Pain [Recovering/Resolving]
  - Hyperphosphataemia [Recovered/Resolved]
  - Hyperparathyroidism secondary [Recovered/Resolved]

NARRATIVE: CASE EVENT DATE: 20241010
